FAERS Safety Report 8099988-X (Version None)
Quarter: 2012Q1

REPORT INFORMATION
  Report Type: 
  Country: None (occurrence: None)
  Receive Date: 20120129
  Receipt Date: 20111212
  Transmission Date: 20120608
  Serious: No
  Sender: FDA-Public Use
  Company Number: US-ABBOTT-11P-163-0875817-00

PATIENT
  Sex: Male
  Weight: 63.56 kg

DRUGS (3)
  1. PREDNISONE TAB [Concomitant]
     Indication: CROHN'S DISEASE
  2. HUMIRA [Suspect]
     Indication: CROHN'S DISEASE
     Dates: start: 20110901, end: 20111101
  3. HUMIRA [Suspect]

REACTIONS (5)
  - MIGRAINE [None]
  - ABDOMINAL PAIN [None]
  - NAUSEA [None]
  - CROHN'S DISEASE [None]
  - DRUG INEFFECTIVE [None]
